FAERS Safety Report 12488932 (Version 5)
Quarter: 2017Q3

REPORT INFORMATION
  Report Type: Spontaneous
  Country: KR (occurrence: KR)
  Receive Date: 20160622
  Receipt Date: 20170727
  Transmission Date: 20171127
  Serious: Yes (Other)
  Sender: FDA-Public Use
  Company Number: KR-009507513-1606KOR009525

PATIENT
  Age: 72 Year
  Sex: Female
  Weight: 48 kg

DRUGS (29)
  1. ENDOXAN [Concomitant]
     Active Substance: CYCLOPHOSPHAMIDE
     Indication: LYMPHOMA
     Dosage: 810 MG, ONCE, CYCLE 1
     Route: 042
     Dates: start: 20150622, end: 20150622
  2. NEULASTA [Concomitant]
     Active Substance: PEGFILGRASTIM
     Indication: PROPHYLAXIS
     Dosage: 6 MG, ONCE, PREFILLED SYRINGE
     Route: 058
     Dates: start: 20150622, end: 20150622
  3. MUTERIN [Concomitant]
     Indication: COUGH
     Dosage: 400 MG (2 CAPSULES), BID
     Route: 048
     Dates: start: 20150609, end: 20150719
  4. OLMETEC [Concomitant]
     Active Substance: OLMESARTAN MEDOXOMIL
     Indication: HYPERTENSION
     Dosage: 40 MG, QD
     Route: 048
     Dates: end: 20150622
  5. SYNATURA [Concomitant]
     Indication: COUGH
     Dosage: 15 ML, BID
     Route: 048
     Dates: start: 20150613, end: 20150619
  6. CODAEWON FORTE [Concomitant]
     Indication: COUGH
     Dosage: 3 PACK, TID
     Route: 048
     Dates: start: 20150616, end: 20150626
  7. VENTOLIN [Concomitant]
     Active Substance: ALBUTEROL SULFATE
     Indication: COUGH
     Dosage: FORMULATION: INHALATION (SPRAY), QID
     Route: 055
     Dates: start: 20150617, end: 20150626
  8. DISOLRIN [Concomitant]
     Indication: COUGH
     Dosage: 40 MG, ONCE
     Route: 042
     Dates: start: 20150621, end: 20150621
  9. MABTHERA [Concomitant]
     Active Substance: RITUXIMAB
     Indication: LYMPHOMA
     Dosage: 540 MG, ONCE, CYCLE 1
     Route: 042
     Dates: start: 20150622, end: 20150622
  10. GASMOTIN [Concomitant]
     Active Substance: MOSAPRIDE CITRATE
     Indication: PROPHYLAXIS AGAINST GASTROINTESTINAL ULCER
     Dosage: 15 MG (3 TABLETS), TID
     Route: 048
     Dates: start: 20150609, end: 20150719
  11. PETHIDINE HCL JEIL [Concomitant]
     Indication: PAIN
     Dosage: 25 MG, QD, STRENGTH 25MG/0.5ML
     Route: 042
     Dates: start: 20150616, end: 20150626
  12. EMEND (FOSAPREPITANT DIMEGLUMINE) [Suspect]
     Active Substance: FOSAPREPITANT DIMEGLUMINE
     Indication: PROPHYLAXIS OF NAUSEA AND VOMITING
     Dosage: 150 MG, ONCE
     Route: 042
     Dates: start: 20150622, end: 20150622
  13. CARDIOXANE [Concomitant]
     Active Substance: DEXRAZOXANE HYDROCHLORIDE
     Indication: LYMPHOMA
     Dosage: 700 MG, ONCE, CYCLE 1
     Route: 042
     Dates: start: 20150622, end: 20150622
  14. ALBIS [Concomitant]
     Active Substance: BISMUTH SUBCITRATE\RANITIDINE HYDROCHLORIDE\SUCRALFATE
     Indication: PROPHYLAXIS AGAINST GASTROINTESTINAL ULCER
     Dosage: 2 TABLET, BID
     Route: 048
     Dates: start: 20150609, end: 20150719
  15. NORVASC [Concomitant]
     Active Substance: AMLODIPINE BESYLATE
     Indication: HYPERTENSION
     Dosage: 5 MG, QD
     Route: 048
     Dates: end: 20150719
  16. ANYCOUGH [Concomitant]
     Active Substance: THEOBROMINE
     Indication: COUGH
     Dosage: 600 MG (2 CAPSULES), BID
     Route: 048
     Dates: start: 20150613, end: 20150616
  17. SOLONDO [Concomitant]
     Active Substance: PREDNISOLONE
     Indication: PREMEDICATION
     Dosage: 100 MG, QD
     Route: 048
     Dates: start: 20150622, end: 20150625
  18. CELEBREX [Concomitant]
     Active Substance: CELECOXIB
     Indication: PAIN
     Dosage: 200 MG, QD
     Route: 048
     Dates: end: 20150719
  19. PENIRAMIN [Concomitant]
     Indication: COUGH
     Dosage: 4 MG (2 TABLETS), BID
     Route: 048
     Dates: end: 20150615
  20. TRAST [Concomitant]
     Indication: PAIN
     Dosage: 1 PACK, ONCE, STRENGTH: 48MG 6.8X5.2 CM
     Route: 062
     Dates: start: 20150621, end: 20150621
  21. LASIX [Concomitant]
     Active Substance: FUROSEMIDE
     Indication: PROPHYLAXIS
     Dosage: 20 MG, QD, STRENGTH: 20MG/2ML
     Route: 042
     Dates: start: 20150623, end: 20150626
  22. ADRIAMYCIN [Concomitant]
     Active Substance: DOXORUBICIN HYDROCHLORIDE
     Indication: LYMPHOMA
     Dosage: 70 MG, ONCE, CYCLE 1
     Route: 042
     Dates: start: 20150622, end: 20150622
  23. NADOXOL [Concomitant]
     Indication: COUGH
     Dosage: 15 MG, TID
     Route: 042
     Dates: start: 20150609, end: 20150709
  24. BACTROBAN [Concomitant]
     Active Substance: MUPIROCIN\MUPIROCIN CALCIUM
     Indication: INFECTION PROPHYLAXIS
     Dosage: 10 G, QD
     Route: 062
     Dates: start: 20150612, end: 20150613
  25. KYTRIL [Concomitant]
     Active Substance: GRANISETRON HYDROCHLORIDE
     Indication: PREMEDICATION
     Dosage: 1 MG, ONCE
     Route: 042
     Dates: start: 20150622, end: 20150622
  26. GLIATILIN [Concomitant]
     Active Substance: CHOLINE ALFOSCERATE
     Indication: CEREBROVASCULAR ACCIDENT
     Dosage: 800 MG (2 CAPSULES), BID
     Route: 048
     Dates: end: 20150719
  27. JETIAM [Concomitant]
     Indication: INFECTION PROPHYLAXIS
     Dosage: 1 G, BID
     Route: 042
     Dates: start: 20150612, end: 20150615
  28. VINCRISTINE SULFATE. [Concomitant]
     Active Substance: VINCRISTINE SULFATE
     Indication: LYMPHOMA
     Dosage: 2 MG, ONCE, CYCLE 1
     Route: 042
     Dates: start: 20150622, end: 20150622
  29. MACPERAN [Concomitant]
     Active Substance: METOCLOPRAMIDE HYDROCHLORIDE
     Indication: PROPHYLAXIS
     Dosage: 10 MG, ONCE
     Route: 042
     Dates: start: 20150612, end: 20150612

REACTIONS (2)
  - Klebsiella infection [Recovered/Resolved]
  - Staphylococcal infection [Recovered/Resolved]

NARRATIVE: CASE EVENT DATE: 20150624
